FAERS Safety Report 9981705 (Version 1)
Quarter: 2014Q1

REPORT INFORMATION
  Report Type: Spontaneous
  Country: US (occurrence: None)
  Receive Date: 20140131
  Receipt Date: 20140131
  Transmission Date: 20141002
  Serious: Yes (Hospitalization)
  Sender: FDA-Public Use
  Company Number: 096286

PATIENT
  Sex: Male

DRUGS (12)
  1. KEPPRA [Suspect]
     Dosage: 1500 MG BID, 500 MG, 3  TABLETS IN AM AND 3 TABLETS IN PM
     Dates: start: 2013, end: 2013
  2. KEPPRA [Suspect]
     Dates: start: 2013, end: 2013
  3. LANTUS [Concomitant]
  4. SYMBICORT [Concomitant]
  5. METOPROLOL [Concomitant]
  6. TEGRETOL [Concomitant]
  7. BUSPAR [Concomitant]
  8. ZOLOFT [Concomitant]
  9. LIPITOR [Concomitant]
  10. LISINOPRIL [Concomitant]
  11. ASPIRIN [Concomitant]
  12. TYLENOL 8 HOUR [Concomitant]

REACTIONS (6)
  - Convulsion [None]
  - Fatigue [None]
  - Amnesia [None]
  - Diarrhoea [None]
  - Weight decreased [None]
  - Incorrect dose administered [None]
